FAERS Safety Report 5828746-9 (Version None)
Quarter: 2008Q3

REPORT INFORMATION
  Report Type: 
  Country: None (occurrence: None)
  Receive Date: 20080731
  Receipt Date: 20080725
  Transmission Date: 20090109
  Serious: Yes (Other)
  Sender: FDA-Public Use
  Company Number: US-SANOFI-SYNTHELABO-A03200802993

PATIENT
  Sex: Male
  Weight: 102.1 kg

DRUGS (1)
  1. ELIGARD [Suspect]
     Indication: PROSTATE CANCER
     Route: 058
     Dates: start: 20080616, end: 20080616

REACTIONS (2)
  - EYE HAEMORRHAGE [None]
  - OCULAR HYPERAEMIA [None]
